FAERS Safety Report 15623153 (Version 1)
Quarter: 2018Q4

REPORT INFORMATION
  Report Type: Spontaneous
  Country: US (occurrence: US)
  Receive Date: 20181112
  Receipt Date: 20181112
  Transmission Date: 20190205
  Serious: Yes (Other)
  Sender: FDA-Public Use
  Company Number: None

PATIENT
  Age: 51 Year
  Sex: Male
  Weight: 88 kg

DRUGS (1)
  1. OXYCODONE [Suspect]
     Active Substance: OXYCODONE
     Indication: LUMBAR RADICULOPATHY
     Dosage: ?          OTHER FREQUENCY:EVERY 8 HRS ;?
     Route: 048
     Dates: start: 20181105, end: 20181106

REACTIONS (5)
  - Dyspnoea [None]
  - Dizziness [None]
  - Muscle spasms [None]
  - Muscle tightness [None]
  - Abdominal pain upper [None]

NARRATIVE: CASE EVENT DATE: 20181105
